FAERS Safety Report 11221900 (Version 1)
Quarter: 2015Q2

REPORT INFORMATION
  Report Type: Spontaneous
  Country: IT (occurrence: IT)
  Receive Date: 20150626
  Receipt Date: 20150626
  Transmission Date: 20150821
  Serious: Yes (Other)
  Sender: FDA-Public Use
  Company Number: IT-TEVA-573035ACC

PATIENT
  Age: 43 Year
  Sex: Female
  Weight: 103 kg

DRUGS (2)
  1. TAIPER [Concomitant]
     Indication: PRODUCT USED FOR UNKNOWN INDICATION
     Dosage: 4 DF
     Route: 042
     Dates: start: 20150611
  2. AMIKACINA TEVA - TEVA ITALIA S.R.L. [Suspect]
     Active Substance: AMIKACIN
     Indication: SEPSIS
     Dosage: 1800 MILLIGRAM DAILY; 1800 MG DAILY
     Route: 042
     Dates: start: 20150611, end: 20150616

REACTIONS (3)
  - Bronchospasm [Recovering/Resolving]
  - Cough [Recovering/Resolving]
  - Erythema [Recovering/Resolving]

NARRATIVE: CASE EVENT DATE: 20150614
